FAERS Safety Report 14784912 (Version 3)
Quarter: 2018Q4

REPORT INFORMATION
  Report Type: Spontaneous
  Country: US (occurrence: US)
  Receive Date: 20180420
  Receipt Date: 20181002
  Transmission Date: 20190204
  Serious: Yes (Other)
  Sender: FDA-Public Use
  Company Number: US-BAYER-2018-072569

PATIENT
  Age: 33 Year
  Sex: Female
  Weight: 123 kg

DRUGS (1)
  1. SKYLA [Suspect]
     Active Substance: LEVONORGESTREL
     Indication: CONTRACEPTION
     Dosage: 14 MCG/24HR, CONT
     Route: 015
     Dates: start: 20170116, end: 2018

REACTIONS (2)
  - Drug ineffective [None]
  - Ectopic pregnancy with contraceptive device [Recovered/Resolved]

NARRATIVE: CASE EVENT DATE: 2018
